FAERS Safety Report 7066193-5 (Version None)
Quarter: 2010Q4

REPORT INFORMATION
  Report Type: 
  Country: None (occurrence: None)
  Receive Date: 20101027
  Receipt Date: 20100730
  Transmission Date: 20110411
  Serious: Yes (Other)
  Sender: FDA-Public Use
  Company Number: HQWYE705830NOV04

PATIENT
  Sex: Female

DRUGS (6)
  1. PREMPRO [Suspect]
     Indication: HORMONE REPLACEMENT THERAPY
     Dosage: UNKNOWN
     Route: 048
     Dates: start: 19840101, end: 20020101
  2. ESTRATEST [Suspect]
  3. ESTRACE [Suspect]
  4. CYCRIN [Suspect]
  5. PREMARIN [Suspect]
  6. PROVERA [Suspect]

REACTIONS (1)
  - BREAST CANCER [None]
